FAERS Safety Report 5229621-3 (Version None)
Quarter: 2007Q1

REPORT INFORMATION
  Report Type: 
  Country: None (occurrence: None)
  Receive Date: 20070201
  Receipt Date: 20061219
  Transmission Date: 20070707
  Serious: Yes (Death)
  Sender: FDA-Public Use
  Company Number: 2006SP008628

PATIENT
  Age: 50 Year
  Sex: Male

DRUGS (2)
  1. REBETOL [Suspect]
     Indication: DRUG USE FOR UNKNOWN INDICATION
     Dosage: 1000 MG; QD; PO
     Route: 048
  2. PEG-INTRON [Suspect]
     Indication: DRUG USE FOR UNKNOWN INDICATION
     Dosage: 80 MCG

REACTIONS (1)
  - HAEMORRHAGE [None]
